FAERS Safety Report 15928460 (Version 2)
Quarter: 2019Q2

REPORT INFORMATION
  Report Type: Spontaneous
  Country: FR (occurrence: FR)
  Receive Date: 20190206
  Receipt Date: 20190416
  Transmission Date: 20190711
  Serious: Yes (Hospitalization)
  Sender: FDA-Public Use
  Company Number: FR-SA-2019SA027731

PATIENT
  Age: 74 Year
  Sex: Male
  Weight: 82 kg

DRUGS (2)
  1. MEROPENEM [MEROPENEM TRIHYDRATE] [Suspect]
     Active Substance: MEROPENEM
     Indication: LUNG DISORDER
     Dosage: 3 G, QD
     Route: 042
     Dates: start: 20181111, end: 20181211
  2. LOVENOX [Suspect]
     Active Substance: ENOXAPARIN SODIUM
     Indication: PROPHYLAXIS
     Dosage: 1 DF, QD
     Route: 058
     Dates: start: 20181029, end: 20190115

REACTIONS (4)
  - Eosinophilia [Not Recovered/Not Resolved]
  - Rash [Recovering/Resolving]
  - Pruritus [Recovered/Resolved]
  - Condition aggravated [Recovering/Resolving]

NARRATIVE: CASE EVENT DATE: 20181217
